FAERS Safety Report 8515831-6 (Version None)
Quarter: 2012Q3

REPORT INFORMATION
  Report Type: 
  Country: None (occurrence: None)
  Receive Date: 20120717
  Receipt Date: 20120711
  Transmission Date: 20120928
  Serious: Yes (Death)
  Sender: FDA-Public Use
  Company Number: US-PFIZER INC-2012167793

PATIENT
  Sex: Male

DRUGS (1)
  1. EPINEPHRINE [Suspect]

REACTIONS (3)
  - BRAIN INJURY [None]
  - OVERDOSE [None]
  - CONVULSION [None]
